FAERS Safety Report 23890459 (Version 1)
Quarter: 2024Q2

REPORT INFORMATION
  Report Type: Spontaneous
  Country: US (occurrence: US)
  Receive Date: 20240523
  Receipt Date: 20240523
  Transmission Date: 20240716
  Serious: No
  Sender: FDA-Public Use
  Company Number: IE-BAYER-2024A053176

PATIENT
  Age: 44 Year
  Sex: Male
  Weight: 77.098 kg

DRUGS (3)
  1. STIVARGA [Suspect]
     Active Substance: REGORAFENIB\REGORAFENIB MONOHYDRATE
     Dosage: UNK
  2. STIVARGA [Suspect]
     Active Substance: REGORAFENIB\REGORAFENIB MONOHYDRATE
     Dosage: 80 MG, QD, FOR 21 DAYS ON AND 7 DAYS OFF
  3. LONSURF [Suspect]
     Active Substance: TIPIRACIL HYDROCHLORIDE\TRIFLURIDINE
     Indication: Rectal cancer
     Dosage: 70 MG, BID ON DAYS 1-5 AND 8-12 EVERY 28-DAYS
     Route: 048
     Dates: end: 2024

REACTIONS (6)
  - Diarrhoea [Recovering/Resolving]
  - Paraesthesia [Recovering/Resolving]
  - Dry skin [Recovering/Resolving]
  - Blood pressure increased [Recovering/Resolving]
  - Drug ineffective [None]
  - Weight decreased [None]

NARRATIVE: CASE EVENT DATE: 20240301
